FAERS Safety Report 20382964 (Version 1)
Quarter: 2022Q1

REPORT INFORMATION
  Report Type: Spontaneous
  Country: US (occurrence: None)
  Receive Date: 20220127
  Receipt Date: 20220127
  Transmission Date: 20220423
  Serious: No
  Sender: FDA-Public Use
  Company Number: 2021A908278

PATIENT
  Age: 24477 Day
  Sex: Female
  Weight: 104.3 kg

DRUGS (1)
  1. PULMICORT FLEXHALER [Suspect]
     Active Substance: BUDESONIDE
     Indication: COVID-19
     Dosage: 180 MCG, 4 PUFFS, TWICE A DAY, FOR 7 DAYS
     Route: 055
     Dates: start: 20211221

REACTIONS (6)
  - Confusional state [Unknown]
  - Wrong technique in device usage process [Unknown]
  - Product use issue [Unknown]
  - Device use issue [Not Recovered/Not Resolved]
  - Product use in unapproved indication [Unknown]
  - Device defective [Unknown]

NARRATIVE: CASE EVENT DATE: 20211221
